FAERS Safety Report 12980307 (Version 2)
Quarter: 2016Q4

REPORT INFORMATION
  Report Type: Report from Study
  Country: JP (occurrence: JP)
  Receive Date: 20161128
  Receipt Date: 20161212
  Transmission Date: 20170207
  Serious: Yes (Hospitalization)
  Sender: FDA-Public Use
  Company Number: JP-DSJP-DSJ-2016-139028

PATIENT

DRUGS (22)
  1. DIASTASE [Concomitant]
     Active Substance: DIASTASE
     Dosage: 1G/DAY
     Route: 048
     Dates: end: 20160927
  2. TIQUIZIUM BROMIDE [Concomitant]
     Active Substance: TIQUIZIUM BROMIDE
     Dosage: 30MG/DAY
     Route: 048
     Dates: end: 20160927
  3. METFORMIN HYDROCHLORIDE. [Concomitant]
     Active Substance: METFORMIN HYDROCHLORIDE
     Dosage: 500MG/DAY
     Route: 048
     Dates: start: 20161025
  4. IOPAMIDOL [Concomitant]
     Active Substance: IOPAMIDOL
     Dosage: 100ML/DAY
     Route: 042
     Dates: start: 20161007, end: 20161007
  5. ATORVASTATIN                       /01326102/ [Concomitant]
     Active Substance: ATORVASTATIN
     Dosage: 10MG/DAY
     Route: 048
     Dates: end: 20160927
  6. OLMETEC OD [Concomitant]
     Dosage: 20MG/DAY
     Route: 048
     Dates: start: 20161024
  7. EDOXABAN [Suspect]
     Active Substance: EDOXABAN TOSYLATE
     Indication: ATRIAL FIBRILLATION
     Dosage: 30 MG, QD
     Route: 048
     Dates: start: 20151211, end: 20161007
  8. AMLODIPINE                         /00972402/ [Concomitant]
     Active Substance: AMLODIPINE BESYLATE
     Dosage: 5MG/DAY
     Route: 048
     Dates: end: 20160927
  9. NEXIUM [Concomitant]
     Active Substance: ESOMEPRAZOLE MAGNESIUM
     Dosage: 20MG/DAY
     Route: 048
     Dates: start: 20161018
  10. HUMULIN R [Concomitant]
     Active Substance: INSULIN HUMAN
     Dosage: 14IU/DAY
     Route: 042
     Dates: start: 20161008, end: 20161024
  11. SUGLAT [Concomitant]
     Active Substance: IPRAGLIFLOZIN L-PROLINE
     Dosage: 50MG/DAY
     Route: 048
     Dates: start: 20151211, end: 20160714
  12. AZOSEMIDE [Concomitant]
     Active Substance: AZOSEMIDE
     Dosage: 30MG/DAY
     Route: 048
     Dates: start: 20151211
  13. BIOFERMIN                          /01617201/ [Concomitant]
     Active Substance: BACILLUS SUBTILIS\LACTOBACILLUS ACIDOPHILUS\STREPTOCOCCUS FAECAIS
     Dosage: 1G/DAY
     Route: 048
     Dates: end: 20160927
  14. ASPARA POTASSIUM [Concomitant]
     Active Substance: POTASSIUM ASPARTATE
     Dosage: 900MG/DAY
     Route: 048
     Dates: start: 20161002, end: 20161021
  15. TENELIA TABLETS 20MG [Concomitant]
     Active Substance: TENELIGLIPTIN
     Dosage: 20MG/DAY
     Route: 048
     Dates: start: 20160401, end: 20161003
  16. AZILVA [Concomitant]
     Active Substance: AZILSARTAN KAMEDOXOMIL
     Dosage: 40MG/DAY
     Route: 048
     Dates: end: 20160927
  17. MAGMITT [Concomitant]
     Active Substance: MAGNESIUM OXIDE
     Dosage: 1.9G/DAY
     Route: 048
     Dates: end: 20160927
  18. TENELIA TABLETS 20MG [Concomitant]
     Active Substance: TENELIGLIPTIN
     Dosage: 20MG/DAY
     Route: 048
     Dates: start: 20161015
  19. EDOXABAN [Suspect]
     Active Substance: EDOXABAN TOSYLATE
     Dosage: 30 MG, QD
     Route: 048
     Dates: start: 20161015
  20. PANCREATIN [Concomitant]
     Active Substance: PANCRELIPASE
     Dosage: 1G/DAY
     Route: 048
     Dates: end: 20160927
  21. METFORMIN HYDROCHLORIDE. [Concomitant]
     Active Substance: METFORMIN HYDROCHLORIDE
     Dosage: 500MG/DAY
     Route: 048
     Dates: start: 20160303, end: 20161003
  22. HEPARIN [Concomitant]
     Active Substance: HEPARIN SODIUM
     Dosage: 10000IU/DAY
     Route: 042
     Dates: start: 20161008, end: 20161014

REACTIONS (11)
  - Normochromic normocytic anaemia [Recovering/Resolving]
  - Eye pain [Recovered/Resolved]
  - Delirium [Recovering/Resolving]
  - Uveitis [Recovering/Resolving]
  - Intraocular pressure increased [Recovering/Resolving]
  - Renal impairment [Recovering/Resolving]
  - Haematuria [Recovering/Resolving]
  - Glaucoma [Recovering/Resolving]
  - Back pain [Recovering/Resolving]
  - Cystitis [Recovering/Resolving]
  - Infection [Recovering/Resolving]

NARRATIVE: CASE EVENT DATE: 20160712
